FAERS Safety Report 5000635-1 (Version None)
Quarter: 2006Q2

REPORT INFORMATION
  Report Type: 
  Country: None (occurrence: None)
  Receive Date: 20060512
  Receipt Date: 20060502
  Transmission Date: 20061013
  Serious: Yes (Hospitalization)
  Sender: FDA-Public Use
  Company Number: US-AVENTIS-200614045US

PATIENT
  Sex: Female

DRUGS (2)
  1. LOVENOX [Suspect]
  2. LOVENOX [Suspect]

REACTIONS (3)
  - BLOOD PRESSURE INCREASED [None]
  - DRUG EXPOSURE DURING PREGNANCY [None]
  - PROTEINURIA [None]
